FAERS Safety Report 6366789-X (Version None)
Quarter: 2009Q3

REPORT INFORMATION
  Report Type: 
  Country: None (occurrence: None)
  Receive Date: 20090921
  Receipt Date: 20090910
  Transmission Date: 20100115
  Serious: Yes (Other)
  Sender: FDA-Public Use
  Company Number: US-BAYER-200932803NA

PATIENT
  Age: 24 Year
  Sex: Female

DRUGS (1)
  1. YAZ [Suspect]
     Indication: CONTRACEPTION
     Dosage: 1 TAB/DAY
     Dates: start: 20090101

REACTIONS (4)
  - ANKLE FRACTURE [None]
  - MUSCLE SPASMS [None]
  - PULMONARY THROMBOSIS [None]
  - THROMBOSIS [None]
